FAERS Safety Report 7543645-2 (Version None)
Quarter: 2011Q2

REPORT INFORMATION
  Report Type: 
  Country: None (occurrence: None)
  Receive Date: 20110613
  Receipt Date: 20030127
  Transmission Date: 20111010
  Serious: Yes (Hospitalization)
  Sender: FDA-Public Use
  Company Number: PHNR2003AU00499

PATIENT
  Sex: Male

DRUGS (2)
  1. EFFEXOR [Concomitant]
     Dosage: 150 MG, BID
  2. CLOZARIL [Suspect]
     Dates: start: 19970813

REACTIONS (2)
  - STAB WOUND [None]
  - PNEUMOTHORAX TRAUMATIC [None]
